FAERS Safety Report 17170961 (Version 1)
Quarter: 2019Q4

REPORT INFORMATION
  Report Type: Report from Study
  Country: ES (occurrence: ES)
  Receive Date: 20191218
  Receipt Date: 20191218
  Transmission Date: 20200122
  Serious: Yes (Other)
  Sender: FDA-Public Use
  Company Number: ES-ASTRAZENECA-2019SF80089

PATIENT
  Age: 12 Year
  Sex: Female

DRUGS (4)
  1. SALBUTAMOL [Suspect]
     Active Substance: ALBUTEROL
     Route: 065
  2. FORMOTEROL [Suspect]
     Active Substance: FORMOTEROL
     Route: 055
  3. BUDESONIDE. [Suspect]
     Active Substance: BUDESONIDE
     Route: 055
  4. FLUTICASONE. [Suspect]
     Active Substance: FLUTICASONE
     Route: 065

REACTIONS (1)
  - Long QT syndrome [Unknown]
